FAERS Safety Report 10766765 (Version 1)
Quarter: 2015Q1

REPORT INFORMATION
  Report Type: Spontaneous
  Country: US (occurrence: US)
  Receive Date: 20150205
  Receipt Date: 20150205
  Transmission Date: 20150721
  Serious: Yes (Other)
  Sender: FDA-Public Use
  Company Number: US-PFIZER INC-2015029905

PATIENT
  Age: 17 Year
  Sex: Male

DRUGS (4)
  1. METHYLENEDIOXYMETHAMPHETAMINE [Suspect]
     Active Substance: METHYLENEDIOXYMETHAMPHETAMINE
     Dosage: UNK
  2. ROBITUSSIN (GUAIFENESIN) [Suspect]
     Active Substance: GUAIFENESIN
     Dosage: UNK
  3. DIPHENHYDRAMINE [Suspect]
     Active Substance: DIPHENHYDRAMINE
     Dosage: 450 MG, DAILY
  4. HYDROCODONE [Suspect]
     Active Substance: HYDROCODONE
     Indication: DEPENDENCE

REACTIONS (3)
  - Drug dependence [Unknown]
  - Dysuria [Unknown]
  - Drug abuse [Unknown]
